FAERS Safety Report 23302911 (Version 2)
Quarter: 2024Q2

REPORT INFORMATION
  Report Type: Report from Study
  Country: CA (occurrence: CA)
  Receive Date: 20231215
  Receipt Date: 20240522
  Transmission Date: 20240716
  Serious: Yes (Other)
  Sender: FDA-Public Use
  Company Number: CA-JNJFOC-20231148483

PATIENT
  Age: 63 Year
  Sex: Male
  Weight: 86 kg

DRUGS (1)
  1. REMICADE [Suspect]
     Active Substance: INFLIXIMAB
     Indication: Crohn^s disease
     Dosage: EXPIRY DATE: 31-MAR-2026
     Route: 041
     Dates: start: 20210301, end: 20231115

REACTIONS (2)
  - Colectomy [Unknown]
  - Erythema [Unknown]

NARRATIVE: CASE EVENT DATE: 20231114
